FAERS Safety Report 7883075-7 (Version None)
Quarter: 2011Q4

REPORT INFORMATION
  Report Type: 
  Country: None (occurrence: None)
  Receive Date: 20111102
  Receipt Date: 20111024
  Transmission Date: 20120403
  Serious: No
  Sender: FDA-Public Use
  Company Number: US-BIOGENIDEC-2011BI040575

PATIENT
  Age: 59 Year
  Sex: Male

DRUGS (3)
  1. AVONEX [Concomitant]
     Indication: MULTIPLE SCLEROSIS
     Route: 030
  2. TYSABRI [Suspect]
     Indication: MULTIPLE SCLEROSIS
     Route: 042
     Dates: start: 20080515
  3. AVONEX [Concomitant]
     Route: 030
     Dates: start: 20010720

REACTIONS (10)
  - CARPAL TUNNEL SYNDROME [None]
  - WEIGHT DECREASED [None]
  - ASTHENIA [None]
  - PARAESTHESIA [None]
  - FATIGUE [None]
  - JOINT SWELLING [None]
  - GAIT DISTURBANCE [None]
  - INTERVERTEBRAL DISC PROTRUSION [None]
  - BURSITIS [None]
  - ARTHRALGIA [None]
